FAERS Safety Report 12907423 (Version 1)
Quarter: 2016Q4

REPORT INFORMATION
  Report Type: Spontaneous
  Country: US (occurrence: US)
  Receive Date: 20161103
  Receipt Date: 20161103
  Transmission Date: 20170207
  Serious: No
  Sender: FDA-Public Use
  Company Number: PHHY2016US150542

PATIENT
  Age: 22 Year
  Sex: Male

DRUGS (1)
  1. CAMBIA [Suspect]
     Active Substance: DICLOFENAC POTASSIUM
     Indication: CONNECTIVE TISSUE DISORDER
     Dosage: 50 MG, UNK (TAKE WITH 30 ML OF WATER EVERY MORNING)
     Route: 048
     Dates: start: 20160920, end: 2016

REACTIONS (2)
  - Product use issue [Unknown]
  - Dizziness [Recovered/Resolved]

NARRATIVE: CASE EVENT DATE: 2016
